FAERS Safety Report 6261168-8 (Version None)
Quarter: 2009Q3

REPORT INFORMATION
  Report Type: 
  Country: None (occurrence: None)
  Receive Date: 20090709
  Receipt Date: 20080710
  Transmission Date: 20100115
  Serious: No
  Sender: FDA-Public Use
  Company Number: US-KINGPHARMUSA00001-K200700458

PATIENT
  Sex: Male
  Weight: 68.481 kg

DRUGS (4)
  1. LEVOXYL [Suspect]
     Indication: HYPOTHYROIDISM
     Dosage: 50 MCG, QOD
     Route: 048
     Dates: start: 20070101
  2. LEVOXYL [Suspect]
     Dosage: 75 MCG, QD
     Route: 048
     Dates: start: 20060801, end: 20070101
  3. XALATAN [Concomitant]
     Indication: GLAUCOMA
     Dosage: 1 DF, QOD
     Route: 047
  4. TIMOLOL MALEATE [Concomitant]
     Indication: GLAUCOMA
     Dosage: UNK
     Route: 047

REACTIONS (10)
  - ABDOMINAL PAIN UPPER [None]
  - ABNORMAL DREAMS [None]
  - CONSTIPATION [None]
  - DRUG INEFFECTIVE [None]
  - ERUCTATION [None]
  - EYE DISORDER [None]
  - INSOMNIA [None]
  - INTESTINAL FUNCTIONAL DISORDER [None]
  - NERVOUSNESS [None]
  - WEIGHT DECREASED [None]
